FAERS Safety Report 7938296-1 (Version None)
Quarter: 2011Q4

REPORT INFORMATION
  Report Type: 
  Country: None (occurrence: None)
  Receive Date: 20111123
  Receipt Date: 20111114
  Transmission Date: 20120403
  Serious: Yes (Other)
  Sender: FDA-Public Use
  Company Number: US-ELI_LILLY_AND_COMPANY-US201111004650

PATIENT
  Age: 78 Year
  Sex: Female

DRUGS (3)
  1. BYETTA [Suspect]
     Dosage: 10 UG, BID
     Route: 058
  2. BYETTA [Suspect]
     Dosage: 5 UG, BID
     Route: 058
  3. BYETTA [Suspect]
     Indication: TYPE 2 DIABETES MELLITUS
     Dosage: 5 UG, BID
     Route: 058

REACTIONS (2)
  - PANCREATIC CARCINOMA [None]
  - INVESTIGATION ABNORMAL [None]
